FAERS Safety Report 5295127-9 (Version None)
Quarter: 2007Q1

REPORT INFORMATION
  Report Type: 
  Country: None (occurrence: None)
  Receive Date: 20070201
  Receipt Date: 20061019
  Transmission Date: 20070707
  Serious: No
  Sender: FDA-Public Use
  Company Number: 2006PV023557

PATIENT
  Age: 62 Year
  Sex: Male

DRUGS (8)
  1. BYETTA [Suspect]
     Indication: DIABETES MELLITUS NON-INSULIN-DEPENDENT
     Dosage: 5 MCG; BID; SC
     Route: 058
     Dates: start: 20061017
  2. XANAX [Suspect]
     Indication: DEPRESSION
     Dosage: 2 MG; PRN; PO
     Route: 048
     Dates: start: 20010101
  3. XANAX [Suspect]
     Indication: PANIC ATTACK
     Dosage: 2 MG; PRN; PO
     Route: 048
     Dates: start: 20010101
  4. NEURONTIN [Suspect]
     Indication: DEPRESSION
     Dosage: 300 MG; PRN; PO
     Route: 048
     Dates: start: 20010101
  5. NEURONTIN [Suspect]
     Indication: PANIC ATTACK
     Dosage: 300 MG; PRN; PO
     Route: 048
     Dates: start: 20010101
  6. HUMALOG [Concomitant]
  7. LANTUS [Concomitant]
  8. KLONOPIN [Concomitant]

REACTIONS (5)
  - ASTHENIA [None]
  - BLOOD GLUCOSE INCREASED [None]
  - DIZZINESS [None]
  - FEELING JITTERY [None]
  - NAUSEA [None]
